FAERS Safety Report 7265690-7 (Version None)
Quarter: 2011Q1

REPORT INFORMATION
  Report Type: 
  Country: None (occurrence: None)
  Receive Date: 20110120
  Receipt Date: 20110114
  Transmission Date: 20110831
  Serious: Yes (Other)
  Sender: FDA-Public Use
  Company Number: VAL_00512_2011

PATIENT
  Age: 45 Year
  Sex: Female

DRUGS (10)
  1. CARBAMAZEPINE [Suspect]
     Indication: GLOSSOPHARYNGEAL NEURALGIA
     Dosage: (200 MG TID, (DF)
  2. CARBAMAZEPINE [Suspect]
     Indication: TRIGEMINAL NEURALGIA
     Dosage: (200 MG TID, (DF)
  3. CARBAMAZEPINE [Suspect]
     Indication: GLOSSOPHARYNGEAL NEURALGIA
     Dosage: (200 MG TID, (DF)
  4. CARBAMAZEPINE [Suspect]
     Indication: TRIGEMINAL NEURALGIA
     Dosage: (200 MG TID, (DF)
  5. FLUTICASONE PROPIONATE [Concomitant]
  6. GABAPENTIN [Suspect]
     Indication: TRIGEMINAL NEURALGIA
     Dosage: (800 MG, DAILY), (300 MG TID)
  7. GABAPENTIN [Suspect]
     Indication: GLOSSOPHARYNGEAL NEURALGIA
     Dosage: (800 MG, DAILY), (300 MG TID)
  8. GABAPENTIN [Suspect]
     Indication: TRIGEMINAL NEURALGIA
     Dosage: (800 MG, DAILY), (300 MG TID)
  9. GABAPENTIN [Suspect]
     Indication: GLOSSOPHARYNGEAL NEURALGIA
     Dosage: (800 MG, DAILY), (300 MG TID)
  10. FLUTICASONE PROPIONATE [Concomitant]

REACTIONS (1)
  - PANCREATITIS [None]
